FAERS Safety Report 7371158-X (Version None)
Quarter: 2011Q1

REPORT INFORMATION
  Report Type: 
  Country: None (occurrence: None)
  Receive Date: 20110324
  Receipt Date: 20110317
  Transmission Date: 20110831
  Serious: Yes (Hospitalization, Other)
  Sender: FDA-Public Use
  Company Number: US-AMGEN-USASP2010002298

PATIENT
  Age: 71 Year
  Sex: Male
  Weight: 84.37 kg

DRUGS (5)
  1. DIABETES MEDICATION [Concomitant]
  2. PRILOSEC [Concomitant]
  3. ATENOLOL [Concomitant]
  4. TEMAZEPAM [Concomitant]
  5. NPLATE [Suspect]
     Indication: IDIOPATHIC THROMBOCYTOPENIC PURPURA
     Dosage: 250 A?G, ONE TIME DOSE
     Dates: start: 20101026, end: 20101026

REACTIONS (20)
  - THROMBOSIS IN DEVICE [None]
  - STICKY PLATELET SYNDROME [None]
  - VIRAL INFECTION [None]
  - WALKING AID USER [None]
  - ECCHYMOSIS [None]
  - THROMBOSIS [None]
  - TREMOR [None]
  - PYREXIA [None]
  - MYALGIA [None]
  - ARTHRALGIA [None]
  - PULMONARY THROMBOSIS [None]
  - DEEP VEIN THROMBOSIS [None]
  - MYOCARDIAL INFARCTION [None]
  - INFLUENZA [None]
  - ASTHENIA [None]
  - THROMBOCYTOPENIA [None]
  - RED BLOOD CELL SEDIMENTATION RATE INCREASED [None]
  - DERMATITIS ALLERGIC [None]
  - THROMBOCYTOSIS [None]
  - PAIN [None]
